FAERS Safety Report 16997418 (Version 1)
Quarter: 2019Q4

REPORT INFORMATION
  Report Type: Spontaneous
  Country: US (occurrence: US)
  Receive Date: 20191105
  Receipt Date: 20191105
  Transmission Date: 20200122
  Serious: Yes (Other)
  Sender: FDA-Public Use
  Company Number: None

PATIENT
  Age: 27 Year
  Sex: Female
  Weight: 47.63 kg

DRUGS (2)
  1. NEXPLANON [Suspect]
     Active Substance: ETONOGESTREL
  2. WOMEN^S HEALTH VITAMINS [Concomitant]

REACTIONS (4)
  - Limb discomfort [None]
  - Loss of personal independence in daily activities [None]
  - Complication of device removal [None]
  - Pain in extremity [None]

NARRATIVE: CASE EVENT DATE: 20170818
